FAERS Safety Report 8859361 (Version 1)
Quarter: 2012Q4

REPORT INFORMATION
  Report Type: 
  Country: US (occurrence: US)
  Receive Date: 20121024
  Receipt Date: 20121024
  Transmission Date: 20130627
  Serious: No
  Sender: FDA-Public Use
  Company Number: US-ASTRAZENECA-2012SE16845

PATIENT
  Age: 45 Year
  Sex: Female

DRUGS (1)
  1. TOPROL XL [Suspect]
     Route: 048

REACTIONS (5)
  - Decreased appetite [Unknown]
  - Headache [Unknown]
  - Irritability [Unknown]
  - Hypoaesthesia [Unknown]
  - Drug dose omission [Unknown]
